FAERS Safety Report 4542328-0 (Version None)
Quarter: 2004Q4

REPORT INFORMATION
  Report Type: 
  Country: None (occurrence: None)
  Receive Date: 20041227
  Receipt Date: 20041126
  Transmission Date: 20050328
  Serious: Yes (Hospitalization, Other)
  Sender: FDA-Public Use
  Company Number: 2004103182

PATIENT
  Age: 78 Year
  Sex: Female
  Weight: 56.6996 kg

DRUGS (2)
  1. BEXTRA [Suspect]
     Indication: PAIN
     Dosage: (1 IN 1 D), ORAL
     Route: 048
     Dates: start: 20041116, end: 20041101
  2. ALENDRONATE SODIUM [Concomitant]

REACTIONS (1)
  - HYPOAESTHESIA [None]
